FAERS Safety Report 5664369-2 (Version None)
Quarter: 2008Q1

REPORT INFORMATION
  Report Type: 
  Country: None (occurrence: None)
  Receive Date: 20080312
  Receipt Date: 20080303
  Transmission Date: 20080703
  Serious: Yes (Hospitalization)
  Sender: FDA-Public Use
  Company Number: TPA2007A02535

PATIENT
  Age: 58 Year
  Sex: Female
  Weight: 135.1719 kg

DRUGS (6)
  1. ACTOS (PIOGLITAZON HYDROCHLORIDE) (45 MILLIGRAM, TABLETS) [Suspect]
     Indication: TYPE 2 DIABETES MELLITUS
     Dosage: 45 MG 1 IN 1 D, PER ORAL
     Route: 048
     Dates: end: 20071220
  2. GLYBURIDE/METFORMIN(METFORMIN, GLIBENCLAMIDE) [Concomitant]
  3. HYDROCODONE (HYDROCODONE) [Concomitant]
  4. XOPENEX HSA (LEVOSALBUTAMOL) (INHALANT) [Concomitant]
  5. ZYRTEC [Concomitant]
  6. NASONEX [Concomitant]

REACTIONS (5)
  - ABSCESS [None]
  - DENTAL CARIES [None]
  - GINGIVAL DISORDER [None]
  - OOPHORECTOMY [None]
  - SENSITIVITY OF TEETH [None]
